FAERS Safety Report 24427869 (Version 1)
Quarter: 2024Q4

REPORT INFORMATION
  Report Type: Spontaneous
  Country: US (occurrence: US)
  Receive Date: 20241011
  Receipt Date: 20241011
  Transmission Date: 20250115
  Serious: Yes (Hospitalization, Other)
  Sender: MERCK
  Company Number: US-009507513-2410USA002339

PATIENT
  Sex: Male

DRUGS (4)
  1. WELIREG [Suspect]
     Active Substance: BELZUTIFAN
     Dosage: 120 MILLIGRAM, QD
     Route: 048
  2. ISOSORBIDE MONONITRATE [Suspect]
     Active Substance: ISOSORBIDE MONONITRATE
     Dosage: 30 MILLIGRAM
  3. ISOSORBIDE MONONITRATE [Suspect]
     Active Substance: ISOSORBIDE MONONITRATE
     Dosage: 60 MILLIGRAM
  4. ISOSORBIDE MONONITRATE [Suspect]
     Active Substance: ISOSORBIDE MONONITRATE
     Dosage: 45 MILLIGRAM

REACTIONS (3)
  - Myocardial infarction [Unknown]
  - Diarrhoea [Unknown]
  - Vomiting [Unknown]
